FAERS Safety Report 5815412-9 (Version None)
Quarter: 2008Q3

REPORT INFORMATION
  Report Type: 
  Country: None (occurrence: None)
  Receive Date: 20080715
  Receipt Date: 20080703
  Transmission Date: 20090109
  Serious: Yes (Other)
  Sender: FDA-Public Use
  Company Number: 2008AP001652

PATIENT
  Age: 3 Year
  Sex: Male

DRUGS (10)
  1. CARBAMAZEPINE [Suspect]
     Indication: AFFECTIVE DISORDER
  2. VALPROIC ACID SYRUP [Suspect]
     Indication: AFFECTIVE DISORDER
  3. VALPROATE SODIUM [Suspect]
     Indication: AFFECTIVE DISORDER
  4. GUANFACINE HYDROCHLORIDE [Concomitant]
  5. LITHIUM CITRATE [Concomitant]
  6. METHYLPHENIDATE HCL [Concomitant]
  7. FLUOXETINE [Concomitant]
  8. HYDROCHLORIDE [Concomitant]
  9. BUSPIRONE HCL [Concomitant]
  10. THIODRIAZINE [Concomitant]

REACTIONS (2)
  - BONE MARROW FAILURE [None]
  - WEIGHT INCREASED [None]
